FAERS Safety Report 17433174 (Version 1)
Quarter: 2020Q1

REPORT INFORMATION
  Report Type: Spontaneous
  Country: IT (occurrence: IT)
  Receive Date: 20200219
  Receipt Date: 20200219
  Transmission Date: 20200409
  Serious: Yes (Other)
  Sender: FDA-Public Use
  Company Number: IT-AMGEN-ITASP2020026669

PATIENT
  Age: 73 Year
  Sex: Male

DRUGS (3)
  1. ARANESP [Suspect]
     Active Substance: DARBEPOETIN ALFA
     Dosage: 300 MICROGRAM, QWK
     Route: 058
  2. RED BLOOD CELLS [Concomitant]
     Active Substance: HUMAN RED BLOOD CELL
  3. ARANESP [Suspect]
     Active Substance: DARBEPOETIN ALFA
     Indication: REFRACTORY CYTOPENIA WITH UNILINEAGE DYSPLASIA
     Dosage: 150 MICROGRAM, QWK
     Route: 058

REACTIONS (2)
  - Therapeutic product effect incomplete [Unknown]
  - Myelodysplastic syndrome [Unknown]
